FAERS Safety Report 20517464 (Version 1)
Quarter: 2022Q1

REPORT INFORMATION
  Report Type: Spontaneous
  Country: AU (occurrence: AU)
  Receive Date: 20220225
  Receipt Date: 20220225
  Transmission Date: 20220423
  Serious: Yes (Death, Hospitalization)
  Sender: FDA-Public Use
  Company Number: AU-MYLANLABS-2022M1012885

PATIENT
  Age: 52 Year
  Sex: Female

DRUGS (13)
  1. PREGABALIN [Suspect]
     Active Substance: PREGABALIN
     Indication: Pain management
     Dosage: UNK
  2. CLONAZEPAM [Suspect]
     Active Substance: CLONAZEPAM
     Indication: Pain management
     Dosage: UNK
  3. CLONAZEPAM [Suspect]
     Active Substance: CLONAZEPAM
     Dosage: CLONAZEPAM DOSES WERE HALVED
  4. CLONAZEPAM [Suspect]
     Active Substance: CLONAZEPAM
     Dosage: DURING DISCHARGE
  5. TEMAZEPAM [Suspect]
     Active Substance: TEMAZEPAM
     Indication: Pain management
     Dosage: UNK
  6. SUBOXONE [Suspect]
     Active Substance: BUPRENORPHINE HYDROCHLORIDE\NALOXONE HYDROCHLORIDE
     Indication: Pain management
     Dosage: UNK
  7. VALPROIC ACID [Suspect]
     Active Substance: VALPROIC ACID
     Indication: Pain management
     Dosage: UNK
  8. METHADONE [Suspect]
     Active Substance: METHADONE HYDROCHLORIDE
     Indication: Pain management
     Dosage: DURING THIS ADMISSION
  9. METHADONE [Suspect]
     Active Substance: METHADONE HYDROCHLORIDE
     Dosage: DURING  INPATIENT ADMISSION DOSES WERE HALVED
  10. METHADONE [Suspect]
     Active Substance: METHADONE HYDROCHLORIDE
     Dosage: DURING DISCHARGE REDUCED
  11. METHADONE [Suspect]
     Active Substance: METHADONE HYDROCHLORIDE
     Dosage: 40 MILLIGRAM, QD
  12. DULOXETINE [Suspect]
     Active Substance: DULOXETINE
     Indication: Pain management
     Dosage: UNK
  13. BUPRENORPHINE [Suspect]
     Active Substance: BUPRENORPHINE
     Indication: Pain management
     Dosage: 0.2 MILLIGRAM
     Route: 060

REACTIONS (3)
  - Toxicity to various agents [Fatal]
  - Depressed level of consciousness [Unknown]
  - Overdose [Unknown]
